FAERS Safety Report 4818264-9 (Version None)
Quarter: 2005Q3

REPORT INFORMATION
  Report Type: 
  Country: None (occurrence: None)
  Receive Date: 20050929
  Receipt Date: 20050622
  Transmission Date: 20060218
  Serious: No
  Sender: FDA-Public Use
  Company Number: 05P-163-0303760-00

PATIENT
  Age: 77 Year
  Sex: Female
  Weight: 83.9154 kg

DRUGS (14)
  1. HUMIRA [Suspect]
     Indication: RHEUMATOID ARTHRITIS
     Dosage: 40 MG, 1 IN 2 WK, SUBCUTANEOUS
     Route: 058
     Dates: start: 20050601
  2. METHOTREXATE [Concomitant]
  3. PREDNISONE [Concomitant]
  4. PRAVASTATIN SODIUM [Concomitant]
  5. THYROID TAB [Concomitant]
  6. ATENOLOL [Concomitant]
  7. FUROSEMIDE [Concomitant]
  8. POTASSIUM [Concomitant]
  9. FOLIC ACID [Concomitant]
  10. MULTI-VITAMINS [Concomitant]
  11. CALCIUM GLUCONATE [Concomitant]
  12. CEVIMELINE HYDROCHLORIDE [Concomitant]
  13. HYDROCODONE [Concomitant]
  14. ERGOCALCIFEROL [Concomitant]

REACTIONS (1)
  - NASOPHARYNGITIS [None]
